FAERS Safety Report 11670441 (Version 1)
Quarter: 2015Q4

REPORT INFORMATION
  Report Type: Spontaneous
  Country: US (occurrence: US)
  Receive Date: 20151027
  Receipt Date: 20151027
  Transmission Date: 20160304
  Serious: Yes (Other)
  Sender: FDA-Public Use
  Company Number: US-ELI_LILLY_AND_COMPANY-US201003008706

PATIENT
  Age: 51 Year
  Sex: Female

DRUGS (12)
  1. MIRAPEX [Concomitant]
     Active Substance: PRAMIPEXOLE DIHYDROCHLORIDE
     Dosage: UNK, EACH EVENING
  2. CLONAZEPAM. [Concomitant]
     Active Substance: CLONAZEPAM
  3. BACLOFEN. [Concomitant]
     Active Substance: BACLOFEN
  4. VITAMIN D [Concomitant]
     Active Substance: CHOLECALCIFEROL
  5. PHENERGAN [Concomitant]
     Active Substance: PROMETHAZINE HYDROCHLORIDE
     Dosage: UNK, AS NEEDED
  6. VIACTIV /00751501/ [Concomitant]
     Route: 048
  7. AMITRIPTYLINE [Concomitant]
     Active Substance: AMITRIPTYLINE
     Dosage: UNK, EACH EVENING
  8. DILANTIN [Concomitant]
     Active Substance: PHENYTOIN
  9. LOMOTIL [Concomitant]
     Active Substance: ATROPINE SULFATE\DIPHENOXYLATE HYDROCHLORIDE
     Dosage: UNK, AS NEEDED
  10. FORTEO [Suspect]
     Active Substance: TERIPARATIDE
     Indication: OSTEOPOROSIS
     Dosage: 20 UG, DAILY (1/D)
     Dates: start: 20100305
  11. DARVON [Concomitant]
     Active Substance: PROPOXYPHENE HYDROCHLORIDE
  12. SODIUM CHLORIDE. [Concomitant]
     Active Substance: SODIUM CHLORIDE
     Dosage: UNK, EACH EVENING
     Route: 042

REACTIONS (7)
  - Vomiting [Unknown]
  - Drug dose omission [Recovered/Resolved]
  - Gastrointestinal disorder [Unknown]
  - Dumping syndrome [Unknown]
  - Malaise [Unknown]
  - Diarrhoea [Unknown]
  - Intentional product misuse [Unknown]

NARRATIVE: CASE EVENT DATE: 201003
